FAERS Safety Report 6025885-7 (Version None)
Quarter: 2008Q4

REPORT INFORMATION
  Report Type: 
  Country: None (occurrence: None)
  Receive Date: 20081223
  Receipt Date: 20081209
  Transmission Date: 20090506
  Serious: Yes (Other)
  Sender: FDA-Public Use
  Company Number: CHPA2008US21936

PATIENT
  Age: 18 Month
  Sex: Female

DRUGS (2)
  1. TRIAMINIC DAY TIME COLD + COUGH (NCH) (DEXTROMETHORPHAN HYDROBROMIDE, [Suspect]
  2. TRIAMINIC NIGHT TIME COLD + COUGH (NCH) (DIPHENHYDRAMINE, PHENYLEPHRIN [Suspect]
     Indication: COUGH
     Dosage: 1 TSP, BID, ORAL
     Route: 048
     Dates: start: 20081101, end: 20081101

REACTIONS (4)
  - ABNORMAL BEHAVIOUR [None]
  - DECREASED APPETITE [None]
  - HAEMATEMESIS [None]
  - INCORRECT DOSE ADMINISTERED [None]
